FAERS Safety Report 15557187 (Version 8)
Quarter: 2020Q1

REPORT INFORMATION
  Report Type: Report from Study
  Country: US (occurrence: US)
  Receive Date: 20181026
  Receipt Date: 20200302
  Transmission Date: 20200409
  Serious: Yes (Hospitalization, Other)
  Sender: FDA-Public Use
  Company Number: US-ACTELION-A-US2018-173984

PATIENT
  Age: 65 Year
  Sex: Female
  Weight: 60.77 kg

DRUGS (7)
  1. VELETRI [Suspect]
     Active Substance: EPOPROSTENOL
     Indication: PULMONARY ARTERIAL HYPERTENSION
     Dosage: 35 NG/KG, PER MIN
     Route: 042
  2. AMBRISENTAN [Suspect]
     Active Substance: AMBRISENTAN
     Indication: PRODUCT USED FOR UNKNOWN INDICATION
     Route: 065
  3. COUMADIN [Concomitant]
     Active Substance: WARFARIN SODIUM
  4. OXYGEN. [Concomitant]
     Active Substance: OXYGEN
     Dosage: 3 L, PER MIN
     Route: 055
  5. VELETRI [Suspect]
     Active Substance: EPOPROSTENOL
     Dosage: 36.5 NG/KG, PER MIN
     Route: 042
  6. OXYGEN. [Concomitant]
     Active Substance: OXYGEN
     Dosage: 8 L, PER MIN
     Route: 055
  7. ADCIRCA [Concomitant]
     Active Substance: TADALAFIL

REACTIONS (33)
  - Rash erythematous [Not Recovered/Not Resolved]
  - Fall [Unknown]
  - Dyspnoea exertional [Unknown]
  - Dyspnoea at rest [Not Recovered/Not Resolved]
  - Tracheal stenosis [Unknown]
  - Chest pain [Not Recovered/Not Resolved]
  - Oxygen consumption increased [Unknown]
  - Oxygen saturation decreased [Unknown]
  - Rash [Not Recovered/Not Resolved]
  - Wrist fracture [Unknown]
  - Upper limb fracture [Unknown]
  - Dyspnoea [Not Recovered/Not Resolved]
  - Tracheostomy [Unknown]
  - Condition aggravated [Unknown]
  - Lower limb fracture [Unknown]
  - Accident [Unknown]
  - Diaphragmatic hernia [Unknown]
  - Nasopharyngitis [Unknown]
  - General physical health deterioration [Unknown]
  - Diarrhoea [Not Recovered/Not Resolved]
  - Flushing [Unknown]
  - Pneumonia [Unknown]
  - Nausea [Unknown]
  - Headache [Unknown]
  - Sinusitis [Unknown]
  - Palpitations [Unknown]
  - Cellulitis [Unknown]
  - Erythema [Unknown]
  - Ankle fracture [Unknown]
  - Pain in jaw [Not Recovered/Not Resolved]
  - Weight increased [Unknown]
  - Respiratory failure [Unknown]
  - Sinus congestion [Unknown]

NARRATIVE: CASE EVENT DATE: 20190902
